FAERS Safety Report 9693864 (Version 2)
Quarter: 2014Q1

REPORT INFORMATION
  Report Type: Spontaneous
  Country: GB (occurrence: None)
  Receive Date: 20131114
  Receipt Date: 20140313
  Transmission Date: 20141002
  Serious: Yes (Hospitalization, Other)
  Sender: FDA-Public Use
  Company Number: 2013-002623

PATIENT
  Age: 27 Year
  Sex: Female

DRUGS (4)
  1. MESALAZINE(MESALAZINE) UNKNOWN [Suspect]
  2. HUMIRA (ADALIMUMAB) 40 MG [Suspect]
     Indication: CROHN^S DISEASE
     Dosage: 40 MG, 1/WEEK, SUBCUTANEOUS
     Route: 058
     Dates: start: 201203, end: 201304
  3. MICROGYNON/00022701/ (ETHINYLESTRADIOL, LEVONORGESTREL) [Concomitant]
  4. PENTASA (MESALAZINE), 1 G [Concomitant]

REACTIONS (4)
  - Interstitial lung disease [None]
  - Renal impairment [None]
  - Renal failure [None]
  - Kidney fibrosis [None]
